FAERS Safety Report 8847527 (Version 1)
Quarter: 2012Q4

REPORT INFORMATION
  Report Type: 
  Country: US (occurrence: US)
  Receive Date: 20121018
  Receipt Date: 20121018
  Transmission Date: 20130627
  Serious: Yes (Hospitalization)
  Sender: FDA-Public Use
  Company Number: US-ARROW-2012-17447

PATIENT
  Age: 49 Year
  Sex: Female

DRUGS (8)
  1. NORCO [Suspect]
     Indication: PRODUCT USED FOR UNKNOWN INDICATION
     Dosage: UNK
     Route: 065
  2. SERTRALINE HYDROCHLORIDE [Suspect]
     Indication: PRODUCT USED FOR UNKNOWN INDICATION
     Dosage: UNK
     Route: 065
  3. CARBOPLATIN [Suspect]
     Indication: ENDOMETRIAL CANCER
     Dosage: UNK
     Route: 042
     Dates: start: 20110412
  4. IXEMPRA [Suspect]
     Indication: ENDOMETRIAL CANCER
     Dosage: UNK
     Route: 042
     Dates: start: 20110412
  5. BEVACIZUMAB [Suspect]
     Indication: ENDOMETRIAL CANCER
     Dosage: UNK
     Route: 042
     Dates: start: 20110412, end: 20120620
  6. NEURONTIN [Suspect]
     Indication: PRODUCT USED FOR UNKNOWN INDICATION
     Dosage: UNK
     Route: 065
  7. ALBUTEROL                          /00139501/ [Concomitant]
     Indication: PRODUCT USED FOR UNKNOWN INDICATION
     Dosage: UNK
     Route: 065
  8. MAGNESIUM OXIDE [Concomitant]
     Indication: PRODUCT USED FOR UNKNOWN INDICATION
     Dosage: UNK
     Route: 065

REACTIONS (2)
  - Abdominal pain [Recovering/Resolving]
  - Constipation [Recovering/Resolving]
